FAERS Safety Report 6402724-3 (Version None)
Quarter: 2009Q4

REPORT INFORMATION
  Report Type: 
  Country: None (occurrence: None)
  Receive Date: 20091013
  Receipt Date: 20091004
  Transmission Date: 20100525
  Serious: Yes (Other)
  Sender: FDA-Public Use
  Company Number: PIR# 0910011

PATIENT
  Age: 75 Year
  Sex: Female

DRUGS (1)
  1. GENTAMICIN [Suspect]

REACTIONS (5)
  - DIABETIC RETINOPATHY [None]
  - MACULOPATHY [None]
  - RETINAL EXUDATES [None]
  - RETINAL HAEMORRHAGE [None]
  - RETINAL OEDEMA [None]
